FAERS Safety Report 16445744 (Version 2)
Quarter: 2019Q2

REPORT INFORMATION
  Report Type: Spontaneous
  Country: US (occurrence: US)
  Receive Date: 20190618
  Receipt Date: 20190627
  Transmission Date: 20190711
  Serious: No
  Sender: FDA-Public Use
  Company Number: US-PFIZER INC-2019253526

PATIENT
  Age: 65 Year
  Sex: Male
  Weight: 86.18 kg

DRUGS (2)
  1. CELECOXIB. [Suspect]
     Active Substance: CELECOXIB
     Indication: INFLAMMATION
     Dosage: 200 MG, 1X/DAY [ONCE EVERY 24 HOURS]
  2. CELECOXIB. [Suspect]
     Active Substance: CELECOXIB
     Indication: ARTHRITIS

REACTIONS (5)
  - Sneezing [Unknown]
  - Oropharyngeal pain [Unknown]
  - Odynophagia [Unknown]
  - Oropharyngeal pain [Not Recovered/Not Resolved]
  - Laryngeal pain [Unknown]

NARRATIVE: CASE EVENT DATE: 20190610
